FAERS Safety Report 23712491 (Version 4)
Quarter: 2024Q4

REPORT INFORMATION
  Report Type: Report from Study
  Country: US (occurrence: US)
  Receive Date: 20240405
  Receipt Date: 20241003
  Transmission Date: 20250115
  Serious: Yes (Hospitalization, Disabling, Other)
  Sender: AMGEN
  Company Number: US-HORIZON THERAPEUTICS-HZN-2021-007073

PATIENT
  Age: 54 Year
  Sex: Female
  Weight: 99.2 kg

DRUGS (46)
  1. TEPEZZA [Suspect]
     Active Substance: TEPROTUMUMAB-TRBW
     Indication: Endocrine ophthalmopathy
     Dosage: UNK, FIRST INFUSION
     Route: 042
     Dates: start: 20210910
  2. TEPEZZA [Suspect]
     Active Substance: TEPROTUMUMAB-TRBW
     Dosage: UNK, 2ND INFUSION
     Route: 042
     Dates: start: 20211011
  3. TEPEZZA [Suspect]
     Active Substance: TEPROTUMUMAB-TRBW
     Dosage: UNK, 3RD INFUSION
     Route: 042
     Dates: start: 20211103
  4. TEPEZZA [Suspect]
     Active Substance: TEPROTUMUMAB-TRBW
     Dosage: UNK, 4TH INFUSION
     Route: 042
     Dates: start: 20211123
  5. TEPEZZA [Suspect]
     Active Substance: TEPROTUMUMAB-TRBW
     Dosage: UNK, FIFTH INFUSION
     Route: 042
     Dates: start: 20211214
  6. TEPEZZA [Suspect]
     Active Substance: TEPROTUMUMAB-TRBW
     Dosage: UNK, 6TH INFUSION
     Route: 042
  7. TEPEZZA [Suspect]
     Active Substance: TEPROTUMUMAB-TRBW
     Dosage: UNK, SEVENTH INFUSION
     Route: 042
     Dates: start: 20220211
  8. PREDNISONE [Suspect]
     Active Substance: PREDNISONE
     Indication: Product used for unknown indication
     Dosage: 20 MILLIGRAM, QD (TABLET)
     Route: 048
  9. PFIZER-BIONTECH COVID-19 VACCINE [Concomitant]
     Active Substance: TOZINAMERAN
     Indication: COVID-19
     Dosage: UNK
     Route: 065
     Dates: start: 20210406
  10. PFIZER-BIONTECH COVID-19 VACCINE [Concomitant]
     Active Substance: TOZINAMERAN
     Dosage: UNK
     Route: 065
     Dates: start: 20220127
  11. ATORVASTATIN [Concomitant]
     Active Substance: ATORVASTATIN
     Dosage: 40 MILLIGRAM, QD
     Route: 048
  12. FENOFIBRATE [Concomitant]
     Active Substance: FENOFIBRATE
     Dosage: 145 MILLIGRAM, QD
     Route: 048
  13. HYDROCHLOROTHIAZIDE [Concomitant]
     Active Substance: HYDROCHLOROTHIAZIDE
     Dosage: 25 MILLIGRAM, QD
     Route: 048
  14. LEVOTHYROXINE [Concomitant]
     Active Substance: LEVOTHYROXINE
     Dosage: 25 MICROGRAM, QD
     Route: 048
  15. LEXAPRO [Concomitant]
     Active Substance: ESCITALOPRAM OXALATE
     Dosage: 20 MILLIGRAM, QD
     Route: 048
  16. LISINOPRIL [Concomitant]
     Active Substance: LISINOPRIL
     Dosage: UNK
     Route: 065
  17. METFORMIN [Concomitant]
     Active Substance: METFORMIN HYDROCHLORIDE
     Dosage: 500 MILLIGRAM, QD
     Route: 048
  18. METOPROLOL SUCCINATE [Concomitant]
     Active Substance: METOPROLOL SUCCINATE
     Dosage: 50 MILLIGRAM, QD
     Route: 048
  19. INFLUENZA VIRUS VACCINE [Concomitant]
     Active Substance: INFLUENZA VIRUS VACCINE
     Dosage: UNK
     Route: 065
     Dates: start: 20161006
  20. INFLUENZA VIRUS VACCINE [Concomitant]
     Active Substance: INFLUENZA VIRUS VACCINE
     Dosage: UNK
     Route: 065
     Dates: start: 20201016
  21. INFLUENZA VIRUS VACCINE [Concomitant]
     Active Substance: INFLUENZA VIRUS VACCINE
     Dosage: UNK
     Route: 065
     Dates: start: 20220127
  22. HUMAN VARICELLA-ZOSTER IMMUNE GLOBULIN [Concomitant]
     Active Substance: HUMAN VARICELLA-ZOSTER IMMUNE GLOBULIN
     Dosage: UNK
     Route: 065
     Dates: start: 20201016
  23. HUMAN VARICELLA-ZOSTER IMMUNE GLOBULIN [Concomitant]
     Active Substance: HUMAN VARICELLA-ZOSTER IMMUNE GLOBULIN
     Dosage: UNK
     Route: 065
     Dates: start: 20201216
  24. BENGAY ARTHRITIS PAIN RELIEVING [Concomitant]
     Active Substance: MENTHOL\METHYL SALICYLATE
     Dosage: UNK
     Route: 065
  25. VOLTAREN [Concomitant]
     Active Substance: DICLOFENAC SODIUM
     Dosage: UNK
     Route: 065
  26. FLEXERIL [Concomitant]
     Active Substance: CYCLOBENZAPRINE HYDROCHLORIDE
     Dosage: 10 MILLIGRAM, TID
     Route: 048
  27. LIDOCAINE [Concomitant]
     Active Substance: LIDOCAINE
     Dosage: 4 PERCENT, QD (PATCH)
     Route: 061
  28. MAGNESIUM ASPARTATE [Concomitant]
     Active Substance: MAGNESIUM ASPARTATE
     Dosage: 1230 MILLIGRAM, BID
     Route: 048
  29. NEURONTIN [Concomitant]
     Active Substance: GABAPENTIN
     Dosage: 100 MILLIGRAM
     Route: 048
  30. TRIAMCINOLONE [Concomitant]
     Active Substance: TRIAMCINOLONE
     Dosage: 0.1 PERCENT, TID
     Route: 061
  31. VOLTAREN ARTHRITIS PAIN [Concomitant]
     Active Substance: DICLOFENAC SODIUM
     Dosage: 1 PERCENT, QID (2 GM)
     Route: 061
  32. INFLUENZA VIRUS VACCINE [Concomitant]
     Active Substance: INFLUENZA VIRUS VACCINE
     Dosage: UNK, SHOT
     Route: 065
  33. DIPHTHERIA AND TETANUS TOXOIDS AND ACELLULAR PERTUSSIS VACCINE ADSORBE [Concomitant]
     Active Substance: DIPHTHERIA AND TETANUS TOXOIDS AND ACELLULAR PERTUSSIS VACCINE ADSORBED
     Dosage: UNK
     Route: 065
  34. PEPCID [Concomitant]
     Active Substance: FAMOTIDINE
     Dosage: 40 MILLIGRAM, QHS
     Route: 048
  35. CETIRIZINE [Concomitant]
     Active Substance: CETIRIZINE HYDROCHLORIDE
     Dosage: UNK
     Route: 065
  36. PNEUMOCOCCAL VACCINE POLYVALENT NOS [Concomitant]
     Active Substance: PNEUMOCOCCAL VACCINE, POLYVALENT
     Dosage: UNK, 20-VALENT CONJUGATE VACCINE
     Route: 065
  37. ALCOHOL PREP PADS [Concomitant]
     Active Substance: ISOPROPYL ALCOHOL
     Dosage: UNK
     Route: 065
  38. ERYTHROMYCIN [Concomitant]
     Active Substance: ERYTHROMYCIN
     Dosage: 0.5 PERCENT
     Route: 065
  39. OMEPRAZOLE [Concomitant]
     Active Substance: OMEPRAZOLE
     Dosage: 20 MILLIGRAM, QD DELAYED RELEASE TABLET
     Route: 048
  40. CLINDAMYCIN [Concomitant]
     Active Substance: CLINDAMYCIN
     Dosage: 450 MILLIGRAM, TID TAKE FOR: 10 DAY
     Route: 048
  41. SODIUM IODIDE I-123 [Concomitant]
     Active Substance: SODIUM IODIDE I-123
     Dosage: UNK
     Route: 065
  42. SODIUM IODIDE I 131 [Concomitant]
     Active Substance: SODIUM IODIDE I-131
     Dosage: UNK
     Route: 065
  43. GADOBUTROL [Concomitant]
     Active Substance: GADOBUTROL
     Dosage: UNK
     Route: 065
  44. IOHEXOL [Concomitant]
     Active Substance: IOHEXOL
     Dosage: UNK
     Route: 065
  45. SODIUM CHLORIDE [Concomitant]
     Active Substance: SODIUM CHLORIDE
     Dosage: UNK
     Route: 065
  46. FLUORESCEIN [Concomitant]
     Active Substance: FLUORESCEIN
     Dosage: UNK
     Route: 065

REACTIONS (54)
  - Deafness permanent [Not Recovered/Not Resolved]
  - Ocular neoplasm [Unknown]
  - Kidney infection [Unknown]
  - Physical disability [Not Recovered/Not Resolved]
  - Disability [Not Recovered/Not Resolved]
  - Unevaluable event [Unknown]
  - Haemolysis [Unknown]
  - Fatigue [Unknown]
  - Glycosylated haemoglobin increased [Unknown]
  - Headache [Unknown]
  - Nausea [Unknown]
  - Tinnitus [Unknown]
  - Pain in extremity [Recovering/Resolving]
  - Blood cholesterol increased [Unknown]
  - Somnolence [Unknown]
  - Pain [Not Recovered/Not Resolved]
  - Injury [Not Recovered/Not Resolved]
  - Concomitant disease aggravated [Not Recovered/Not Resolved]
  - Anxiety [Not Recovered/Not Resolved]
  - Discomfort [Unknown]
  - Quality of life decreased [Not Recovered/Not Resolved]
  - Emotional distress [Not Recovered/Not Resolved]
  - Economic problem [Not Recovered/Not Resolved]
  - Sinusitis [Unknown]
  - Poor venous access [Unknown]
  - Contusion [Recovering/Resolving]
  - Blood glucose increased [Unknown]
  - Red blood cell count increased [Unknown]
  - Monocyte count decreased [Unknown]
  - Carbon dioxide decreased [Unknown]
  - Alanine aminotransferase increased [Unknown]
  - Blood alkaline phosphatase increased [Unknown]
  - Body temperature decreased [Unknown]
  - Blood pressure systolic increased [Unknown]
  - Blood pressure diastolic increased [Unknown]
  - Heart rate decreased [Unknown]
  - Mean cell volume decreased [Unknown]
  - Red cell distribution width decreased [Unknown]
  - Glomerular filtration rate decreased [Unknown]
  - High density lipoprotein decreased [Unknown]
  - Total cholesterol/HDL ratio decreased [Unknown]
  - Blood sodium decreased [Unknown]
  - Blood chloride decreased [Unknown]
  - Blood creatinine increased [Unknown]
  - Inflammation [Unknown]
  - Low density lipoprotein increased [Unknown]
  - Blood triglycerides increased [Unknown]
  - Icterus index increased [Unknown]
  - Hyperlipidaemia [Unknown]
  - Rash [Unknown]
  - Back pain [Unknown]
  - Stress [Unknown]
  - Dysphonia [Unknown]
  - SARS-CoV-2 test positive [Unknown]

NARRATIVE: CASE EVENT DATE: 20210101
